FAERS Safety Report 6542189-4 (Version None)
Quarter: 2010Q1

REPORT INFORMATION
  Report Type: 
  Country: None (occurrence: None)
  Receive Date: 20100119
  Receipt Date: 20091201
  Transmission Date: 20100710
  Serious: Yes (Hospitalization)
  Sender: FDA-Public Use
  Company Number: A0832890A

PATIENT
  Age: 64 Year
  Sex: Female

DRUGS (8)
  1. AVANDIA [Suspect]
     Dosage: 2MG TWICE PER DAY
     Route: 048
     Dates: start: 19990101, end: 20070101
  2. GLYBURIDE [Concomitant]
  3. TOPROL-XL [Concomitant]
  4. DYAZIDE [Concomitant]
  5. MONOPRIL [Concomitant]
  6. FOSINOPRIL SODIUM [Concomitant]
  7. TRIAMTERENE AND HYDROCHLOROTHIAZIDE [Concomitant]
  8. INDERAL [Concomitant]
     Dates: end: 20030720

REACTIONS (3)
  - AMNESIA [None]
  - TRANSIENT ISCHAEMIC ATTACK [None]
  - VERTEBRAL ARTERY OCCLUSION [None]
